FAERS Safety Report 10884963 (Version 2)
Quarter: 2015Q4

REPORT INFORMATION
  Report Type: Spontaneous
  Country: JP (occurrence: JP)
  Receive Date: 20150304
  Receipt Date: 20151125
  Transmission Date: 20160304
  Serious: No
  Sender: FDA-Public Use
  Company Number: JP-TEVA-544566ISR

PATIENT
  Age: 65 Year
  Sex: Female
  Weight: 34 kg

DRUGS (9)
  1. RINDERON V [Concomitant]
     Active Substance: BETAMETHASONE VALERATE
     Indication: CANCER PAIN
     Route: 048
  2. CELECOX [Concomitant]
     Active Substance: CELECOXIB
     Indication: CANCER PAIN
     Route: 048
     Dates: start: 20140720
  3. NORITREN [Concomitant]
     Active Substance: NORTRIPTYLINE HYDROCHLORIDE
     Indication: CANCER PAIN
     Route: 048
     Dates: start: 20140719
  4. OXYCONTIN [Concomitant]
     Active Substance: OXYCODONE HYDROCHLORIDE
     Indication: CANCER PAIN
     Route: 065
     Dates: start: 20140716
  5. OXINORM [Concomitant]
     Active Substance: OXYCODONE HYDROCHLORIDE
     Indication: BREAKTHROUGH PAIN
     Route: 048
     Dates: start: 20140708
  6. E-FEN BUCCAL [Suspect]
     Active Substance: FENTANYL CITRATE
     Dosage: 400 MICROGRAM DAILY;
     Route: 002
     Dates: start: 20140704, end: 20140704
  7. TEGRETOL [Concomitant]
     Active Substance: CARBAMAZEPINE
     Indication: CANCER PAIN
     Route: 048
  8. E-FEN BUCCAL [Suspect]
     Active Substance: FENTANYL CITRATE
     Indication: BREAKTHROUGH PAIN
     Dosage: 200 MICROGRAM DAILY; 200-600 MICROGRAM
     Route: 002
     Dates: start: 20140705, end: 20140708
  9. DUROTEP [Concomitant]
     Active Substance: FENTANYL
     Indication: CANCER PAIN
     Dosage: 900 MICROGRAM DAILY;
     Route: 062
     Dates: end: 20140716

REACTIONS (1)
  - No adverse event [Unknown]
